FAERS Safety Report 18505333 (Version 3)
Quarter: 2021Q2

REPORT INFORMATION
  Report Type: Report from Study
  Country: US (occurrence: US)
  Receive Date: 20201116
  Receipt Date: 20210421
  Transmission Date: 20210717
  Serious: No
  Sender: FDA-Public Use
  Company Number: US-SAGE-2020SAGE000103

PATIENT
  Age: 37 Year
  Sex: Female

DRUGS (4)
  1. ZULRESSO [Suspect]
     Active Substance: BREXANOLONE
     Indication: PERINATAL DEPRESSION
     Dosage: 20 G
     Route: 042
     Dates: start: 20201013, end: 20201014
  2. ZULRESSO [Suspect]
     Active Substance: BREXANOLONE
     Dosage: 20 G
     Route: 042
     Dates: start: 20201014, end: 20201014
  3. ZULRESSO [Suspect]
     Active Substance: BREXANOLONE
     Dosage: 22 G
     Route: 042
     Dates: start: 20201014, end: 20201016
  4. SERTRALINE [Suspect]
     Active Substance: SERTRALINE HYDROCHLORIDE
     Indication: PERINATAL DEPRESSION
     Dosage: UNK
     Route: 065

REACTIONS (7)
  - Infusion site oedema [Unknown]
  - Product administration interrupted [Recovered/Resolved]
  - Infusion site pain [Unknown]
  - Stress [Recovered/Resolved]
  - Feeling abnormal [Recovered/Resolved]
  - Crying [Recovered/Resolved]
  - Therapeutic product effect delayed [Recovered/Resolved]

NARRATIVE: CASE EVENT DATE: 2020
